FAERS Safety Report 19428804 (Version 1)
Quarter: 2021Q2

REPORT INFORMATION
  Report Type: Spontaneous
  Country: US (occurrence: US)
  Receive Date: 20210617
  Receipt Date: 20210617
  Transmission Date: 20210717
  Serious: No
  Sender: FDA-Public Use
  Company Number: None

PATIENT
  Age: 19 Year
  Sex: Male

DRUGS (1)
  1. HUMIRA [Suspect]
     Active Substance: ADALIMUMAB
     Indication: HIDRADENITIS
     Dosage: INJECT 160MG (2 PENS) SUBCUTANEOUSLY  ON DAY 1. 80MG (1 PEN) ON DAY  15, THEN 40MG ONCE A WEEK STARTING  ON DAY
     Route: 058
     Dates: start: 202010

REACTIONS (2)
  - Depression [None]
  - Anxiety [None]
